FAERS Safety Report 10033064 (Version 2)
Quarter: 2014Q2

REPORT INFORMATION
  Report Type: Spontaneous
  Country: JP (occurrence: JP)
  Receive Date: 20140324
  Receipt Date: 20140407
  Transmission Date: 20141212
  Serious: Yes (Life-Threatening)
  Sender: FDA-Public Use
  Company Number: JP-WATSON-2014-05175

PATIENT
  Age: 64 Year
  Sex: Male

DRUGS (3)
  1. DIAZEPAM (UNKNOWN) [Suspect]
     Indication: PSYCHOMOTOR HYPERACTIVITY
     Dosage: UNKNOWN
     Route: 065
  2. FLUNITRAZEPAM (UNKNOWN) [Suspect]
     Indication: PSYCHOMOTOR HYPERACTIVITY
     Dosage: UNKNOWN
     Route: 065
  3. BUPRENORPHINE (UNKNOWN) [Suspect]
     Indication: PSYCHOMOTOR HYPERACTIVITY
     Dosage: UNKNOWN
     Route: 065

REACTIONS (1)
  - Neuroleptic malignant syndrome [Recovering/Resolving]
